FAERS Safety Report 15202312 (Version 1)
Quarter: 2018Q3

REPORT INFORMATION
  Report Type: Spontaneous
  Country: GR (occurrence: GR)
  Receive Date: 20180726
  Receipt Date: 20180726
  Transmission Date: 20181010
  Serious: Yes (Hospitalization)
  Sender: FDA-Public Use
  Company Number: GR-ASTRAZENECA-2018SE94117

PATIENT
  Age: 76 Year
  Sex: Male

DRUGS (8)
  1. LOBIVON [Suspect]
     Active Substance: NEBIVOLOL HYDROCHLORIDE
     Route: 065
  2. TORASEMIDE [Suspect]
     Active Substance: TORSEMIDE
     Route: 065
  3. CRESTOR [Suspect]
     Active Substance: ROSUVASTATIN CALCIUM
     Route: 048
  4. EZETROL [Suspect]
     Active Substance: EZETIMIBE
     Route: 065
  5. PRADAXA [Suspect]
     Active Substance: DABIGATRAN ETEXILATE MESYLATE
     Route: 065
  6. SEVIKAR [Suspect]
     Active Substance: AMLODIPINE BESYLATE\OLMESARTAN MEDOXOMIL
     Dosage: (20+5) MG
     Route: 065
  7. ZYLORIC [Suspect]
     Active Substance: ALLOPURINOL
     Dosage: 100
     Route: 065
  8. RANITIDINE. [Suspect]
     Active Substance: RANITIDINE
     Route: 065

REACTIONS (1)
  - Hyponatraemia [Recovered/Resolved]
